FAERS Safety Report 9771427 (Version 1)
Quarter: 2013Q4

REPORT INFORMATION
  Report Type: Report from Study
  Country: US (occurrence: US)
  Receive Date: 20131219
  Receipt Date: 20131219
  Transmission Date: 20140711
  Serious: Yes (Other)
  Sender: FDA-Public Use
  Company Number: US-ROCHE-1317046

PATIENT
  Sex: Male

DRUGS (2)
  1. LUCENTIS [Suspect]
     Indication: MACULAR DEGENERATION
     Route: 050
     Dates: start: 20131120
  2. AVASTIN [Suspect]
     Indication: MACULAR DEGENERATION
     Route: 050
     Dates: start: 20131018

REACTIONS (4)
  - Blindness [Unknown]
  - No therapeutic response [Unknown]
  - Vision blurred [Unknown]
  - Confusional state [Unknown]
